FAERS Safety Report 16934538 (Version 1)
Quarter: 2019Q4

REPORT INFORMATION
  Report Type: Spontaneous
  Country: US (occurrence: US)
  Receive Date: 20191018
  Receipt Date: 20191018
  Transmission Date: 20200122
  Serious: Yes (Other)
  Sender: FDA-Public Use
  Company Number: US-ROCHE-2442540

PATIENT
  Age: 6 Year
  Sex: Male

DRUGS (6)
  1. GANCICLOVIR. [Suspect]
     Active Substance: GANCICLOVIR
     Indication: CYTOMEGALOVIRUS INFECTION
     Route: 042
  2. GANCICLOVIR. [Suspect]
     Active Substance: GANCICLOVIR
     Route: 042
  3. MICAFUNGIN. [Concomitant]
     Active Substance: MICAFUNGIN SODIUM
  4. FOSCARNET [Concomitant]
     Active Substance: FOSCARNET
  5. CEFEPIME [Concomitant]
     Active Substance: CEFEPIME HYDROCHLORIDE
  6. SULFAMETHOXAZOLE/TRIMETHOPRIM [Concomitant]
     Active Substance: SULFAMETHOXAZOLE\TRIMETHOPRIM

REACTIONS (5)
  - Cytomegalovirus infection [Unknown]
  - Incorrect dosage administered [Unknown]
  - Intentional product use issue [Unknown]
  - Off label use [Unknown]
  - Underdose [Unknown]
